FAERS Safety Report 22537874 (Version 2)
Quarter: 2023Q2

REPORT INFORMATION
  Report Type: Spontaneous
  Country: FR (occurrence: FR)
  Receive Date: 20230608
  Receipt Date: 20230619
  Transmission Date: 20230721
  Serious: Yes (Other)
  Sender: FDA-Public Use
  Company Number: FR-TEVA-2023-FR-2894405

PATIENT
  Age: 55 Year
  Sex: Male

DRUGS (9)
  1. METHOTREXATE [Suspect]
     Active Substance: METHOTREXATE
     Indication: Spondyloarthropathy
     Dosage: 15 MG/WEEK
     Route: 065
  2. AMPHOTERICIN B [Suspect]
     Active Substance: AMPHOTERICIN B
     Indication: Leishmaniasis
     Dosage: 42 MG/KG
     Route: 065
  3. AMPHOTERICIN B [Suspect]
     Active Substance: AMPHOTERICIN B
     Indication: Arthritis
     Route: 065
  4. CERTOLIZUMAB [Suspect]
     Active Substance: CERTOLIZUMAB
     Indication: Spondyloarthropathy
     Dosage: 200 MG/2 WEEKS
     Route: 065
  5. AMPHOTERICIN B [Suspect]
     Active Substance: AMPHOTERICIN B
     Indication: Leishmaniasis
     Dosage: 25 MG
     Route: 014
  6. AMPHOTERICIN B [Suspect]
     Active Substance: AMPHOTERICIN B
     Indication: Arthritis
  7. MILTEFOSINE [Suspect]
     Active Substance: MILTEFOSINE
     Indication: Leishmaniasis
     Dosage: 150 MILLIGRAM DAILY; 50 MG THREE TIMES DAILY
     Route: 048
  8. MILTEFOSINE [Suspect]
     Active Substance: MILTEFOSINE
     Indication: Arthritis
  9. PREDNISONE [Concomitant]
     Active Substance: PREDNISONE
     Indication: Spondyloarthropathy
     Dosage: 5 MILLIGRAM DAILY; ONCE A DAY
     Route: 048

REACTIONS (6)
  - Synovitis [Unknown]
  - Acute kidney injury [Unknown]
  - Leishmaniasis [Recovered/Resolved]
  - Arthritis [Recovered/Resolved]
  - Nausea [Recovered/Resolved]
  - Cough [Recovered/Resolved]
